FAERS Safety Report 17855994 (Version 1)
Quarter: 2020Q2

REPORT INFORMATION
  Report Type: Spontaneous
  Country: DE (occurrence: DE)
  Receive Date: 20200603
  Receipt Date: 20200603
  Transmission Date: 20200714
  Serious: Yes (Hospitalization)
  Sender: FDA-Public Use
  Company Number: NVSC2020DE152438

PATIENT
  Age: 3 Year
  Sex: Female
  Weight: 12 kg

DRUGS (3)
  1. SANDIMMUNE [Suspect]
     Active Substance: CYCLOSPORINE
     Indication: LIVER TRANSPLANT
     Dosage: 25 MG, Q12H (2 X 25 MG)
     Route: 048
     Dates: start: 201604
  2. URSOFALK [Concomitant]
     Active Substance: URSODIOL
     Indication: CONGENITAL ABSENCE OF BILE DUCTS
     Dosage: 50 MG, Q12H (2 X 50 MG)
     Route: 048
     Dates: start: 201510
  3. MAGNESIUM [Concomitant]
     Active Substance: MAGNESIUM
     Indication: LIVER TRANSPLANT
     Dosage: 5 MMOL
     Route: 048
     Dates: start: 201608

REACTIONS (3)
  - Upper respiratory tract infection [Recovered/Resolved]
  - Dehydration [Recovered/Resolved]
  - Pyrexia [Recovered/Resolved]

NARRATIVE: CASE EVENT DATE: 20190729
